FAERS Safety Report 6320507-X (Version None)
Quarter: 2009Q3

REPORT INFORMATION
  Report Type: 
  Country: None (occurrence: None)
  Receive Date: 20090822
  Receipt Date: 20081114
  Transmission Date: 20100115
  Serious: No
  Sender: FDA-Public Use
  Company Number: US-ABBOTT-08P-163-0487935-00

PATIENT
  Weight: 102.15 kg

DRUGS (2)
  1. NIASPAN [Suspect]
     Indication: BLOOD CHOLESTEROL INCREASED
     Route: 048
     Dates: start: 20081031
  2. NIASPAN [Suspect]
     Route: 048

REACTIONS (2)
  - FLUSHING [None]
  - PAIN OF SKIN [None]
